FAERS Safety Report 5012763-5 (Version None)
Quarter: 2006Q2

REPORT INFORMATION
  Report Type: 
  Country: None (occurrence: None)
  Receive Date: 20060530
  Receipt Date: 20060203
  Transmission Date: 20061013
  Serious: Yes (Other)
  Sender: FDA-Public Use
  Company Number: US-BRISTOL-MYERS SQUIBB COMPANY-13274949

PATIENT
  Age: 67 Year
  Sex: Male

DRUGS (10)
  1. ERBITUX [Suspect]
     Indication: COLON CANCER
     Dosage: INIT ON 02-SEP-2005. REPORTEDLY STOPPED ON 19-JAN-2006 BUT ALSO REPORTED REDUCED ON 23-FEB-2006.
     Route: 042
  2. ADVAIR DISKUS 100/50 [Concomitant]
  3. COMBIVENT [Concomitant]
  4. COMPAZINE [Concomitant]
  5. INDOCIN [Concomitant]
  6. LASIX [Concomitant]
  7. LEXAPRO [Concomitant]
  8. MAGNESIUM OXIDE [Concomitant]
  9. PROTONIX [Concomitant]
  10. TRAZODONE HCL [Concomitant]

REACTIONS (1)
  - INTERSTITIAL LUNG DISEASE [None]
